FAERS Safety Report 4289795-8 (Version None)
Quarter: 2004Q1

REPORT INFORMATION
  Report Type: 
  Country: None (occurrence: None)
  Receive Date: 20040210
  Receipt Date: 20040129
  Transmission Date: 20041129
  Serious: Yes (Hospitalization)
  Sender: FDA-Public Use
  Company Number: NO-GLAXOSMITHKLINE-B0321497A

PATIENT
  Age: 78 Year
  Sex: Female

DRUGS (4)
  1. SEROXAT [Suspect]
     Indication: DEPRESSION
     Dosage: 20MG PER DAY
     Route: 065
  2. SELEGILINE HYDROCHLORIDE [Suspect]
     Indication: PARKINSON'S DISEASE
     Dosage: 10MG PER DAY
     Route: 065
  3. CARBIDOPA AND LEVODOPA [Suspect]
     Indication: PARKINSON'S DISEASE
     Dosage: 1.5U FOUR TIMES PER DAY
     Route: 065
  4. MIANSERIN HYDROCHLORIDE [Suspect]
     Indication: DEPRESSION
     Dosage: 90MG PER DAY
     Route: 065

REACTIONS (7)
  - DRUG INTERACTION [None]
  - HYPERHIDROSIS [None]
  - HYPERTENSION [None]
  - MYOCLONUS [None]
  - SEROTONIN SYNDROME [None]
  - SKIN WARM [None]
  - TACHYCARDIA [None]
